FAERS Safety Report 6821154-3 (Version None)
Quarter: 2010Q3

REPORT INFORMATION
  Report Type: 
  Country: None (occurrence: None)
  Receive Date: 20100707
  Receipt Date: 20080202
  Transmission Date: 20110219
  Serious: No
  Sender: FDA-Public Use
  Company Number: US-PFIZER INC-2008010918

PATIENT
  Age: 16 Year
  Sex: Female
  Weight: 58.97 kg

DRUGS (1)
  1. ZOLOFT [Suspect]
     Indication: DEPRESSION
     Dates: start: 20070901

REACTIONS (3)
  - HEADACHE [None]
  - INSOMNIA [None]
  - VISION BLURRED [None]
